FAERS Safety Report 19520936 (Version 10)
Quarter: 2022Q3

REPORT INFORMATION
  Report Type: Spontaneous
  Country: JP (occurrence: JP)
  Receive Date: 20210712
  Receipt Date: 20220812
  Transmission Date: 20221027
  Serious: Yes (Death, Life-Threatening, Hospitalization, Other)
  Sender: FDA-Public Use
  Company Number: JP-BRISTOL-MYERS SQUIBB COMPANY-BMS-2021-067077

PATIENT
  Age: 82 Year
  Sex: Male
  Weight: 52 kg

DRUGS (11)
  1. OPDIVO [Suspect]
     Active Substance: NIVOLUMAB
     Indication: Gastric cancer
     Dosage: 240 MILLIGRAM, Q2WK
     Route: 041
     Dates: start: 20210427, end: 20210622
  2. ANAMORELIN HYDROCHLORIDE [Suspect]
     Active Substance: ANAMORELIN HYDROCHLORIDE
     Indication: Cachexia
     Dosage: 50 MILLIGRAM, Q12H
     Route: 048
     Dates: start: 20210622, end: 20210630
  3. BILASTINE [Concomitant]
     Active Substance: BILASTINE
     Indication: Product used for unknown indication
     Dosage: 20 MG, EVERYDAY
     Route: 048
     Dates: start: 20210126, end: 20210630
  4. BIO-THREE [Concomitant]
     Active Substance: HERBALS
     Dosage: 1 DF, Q8H, 3 IN 1 DAY
     Route: 048
     Dates: end: 20210630
  5. BIO-THREE [Concomitant]
     Active Substance: HERBALS
     Indication: Product used for unknown indication
  6. CARBOCYSTEINE [Concomitant]
     Active Substance: CARBOCYSTEINE
     Indication: Product used for unknown indication
     Dosage: 500 MG, Q8H, 3 IN 1 DAY
     Route: 048
     Dates: start: 20200107, end: 20210630
  7. ACETAMINOPHEN [Concomitant]
     Active Substance: ACETAMINOPHEN
     Indication: Product used for unknown indication
     Dosage: 500 MG, EVERYDAY
     Route: 048
     Dates: end: 20210630
  8. KETOPROFEN [Concomitant]
     Active Substance: KETOPROFEN
     Indication: Product used for unknown indication
     Dosage: 40 MG, EVERYDAY
     Route: 062
  9. CARBOCYSTEINE [Concomitant]
     Active Substance: CARBOCYSTEINE
     Indication: Product used for unknown indication
     Dosage: 500 MILLIGRAM, QD
     Route: 048
     Dates: end: 20210630
  10. METHYLCOBALAMIN [Concomitant]
     Active Substance: METHYLCOBALAMIN
     Indication: Product used for unknown indication
     Dosage: 500 MICROGRAM, QD
     Route: 048
  11. VESICARE [Concomitant]
     Active Substance: SOLIFENACIN SUCCINATE
     Indication: Product used for unknown indication
     Dosage: 2.5 MILLIGRAM, QD
     Route: 048
     Dates: start: 20210309, end: 20210630

REACTIONS (5)
  - Interstitial lung disease [Fatal]
  - Respiratory failure [Fatal]
  - Blood glucose increased [Not Recovered/Not Resolved]
  - Acute kidney injury [Recovered/Resolved with Sequelae]
  - Malignant neoplasm progression [Unknown]

NARRATIVE: CASE EVENT DATE: 20210601
